FAERS Safety Report 7706189-0 (Version None)
Quarter: 2011Q3

REPORT INFORMATION
  Report Type: 
  Country: None (occurrence: None)
  Receive Date: 20110824
  Receipt Date: 20110724
  Transmission Date: 20111222
  Serious: No
  Sender: FDA-Public Use
  Company Number: US-BAYER-2011-066572

PATIENT
  Age: 44 Year
  Sex: Male
  Weight: 94 kg

DRUGS (4)
  1. NORVASC [Concomitant]
  2. ALEVE (CAPLET) [Suspect]
     Dosage: 2 DF, ONCE
  3. LIPITOR [Concomitant]
  4. TEGRETOL [Concomitant]

REACTIONS (1)
  - THROAT IRRITATION [None]
